FAERS Safety Report 4686774-3 (Version None)
Quarter: 2005Q2

REPORT INFORMATION
  Report Type: 
  Country: None (occurrence: None)
  Receive Date: 20050606
  Receipt Date: 20050519
  Transmission Date: 20051028
  Serious: Yes (Death)
  Sender: FDA-Public Use
  Company Number: FR_050406208

PATIENT
  Age: 58 Year
  Sex: Male
  Weight: 90 kg

DRUGS (8)
  1. XIGRIS [Suspect]
     Indication: SEPTIC SHOCK
     Dosage: 51.84 MG DAY
     Dates: start: 20050330, end: 20050403
  2. HYDROCORTISONE [Concomitant]
  3. ROCEPHINE (CEFTRIAXONE /00672201/) [Concomitant]
  4. HEPARIN [Concomitant]
  5. LEVOFLOXACIN [Concomitant]
  6. FLUDROCORTISONE [Concomitant]
  7. MIDAZOLAM HCL [Concomitant]
  8. FENTANYL [Concomitant]

REACTIONS (2)
  - BRAIN OEDEMA [None]
  - MENINGORRHAGIA [None]
